FAERS Safety Report 4396721-X (Version None)
Quarter: 2004Q3

REPORT INFORMATION
  Report Type: 
  Country: None (occurrence: None)
  Receive Date: 20040714
  Receipt Date: 20040702
  Transmission Date: 20050211
  Serious: Yes (Congenital Anomaly)
  Sender: FDA-Public Use
  Company Number: US-BRISTOL-MYERS SQUIBB COMPANY-12630455

PATIENT
  Age: 29 Year
  Sex: Female

DRUGS (1)
  1. ABILIFY [Suspect]
     Indication: SCHIZOAFFECTIVE DISORDER
     Route: 048

REACTIONS (6)
  - NEONATAL DISORDER [None]
  - NORMAL NEWBORN [None]
  - PRESCRIBED OVERDOSE [None]
  - PRURITUS [None]
  - TWIN PREGNANCY [None]
  - URINARY TRACT INFECTION [None]
